FAERS Safety Report 20639097 (Version 1)
Quarter: 2022Q1

REPORT INFORMATION
  Report Type: Spontaneous
  Country: DE (occurrence: None)
  Receive Date: 20220326
  Receipt Date: 20220326
  Transmission Date: 20220423
  Serious: Yes (Other)
  Sender: FDA-Public Use
  Company Number: DE-ROCHE-3055224

PATIENT
  Age: 78 Year
  Sex: Male

DRUGS (1)
  1. TOCILIZUMAB [Suspect]
     Active Substance: TOCILIZUMAB
     Indication: Polymyalgia rheumatica
     Route: 065
     Dates: start: 2020

REACTIONS (4)
  - Off label use [Unknown]
  - Bladder neoplasm [Not Recovered/Not Resolved]
  - Metastases to spine [Not Recovered/Not Resolved]
  - Soft tissue neoplasm [Not Recovered/Not Resolved]

NARRATIVE: CASE EVENT DATE: 20211201
